FAERS Safety Report 21396607 (Version 1)
Quarter: 2022Q3

REPORT INFORMATION
  Report Type: Spontaneous
  Country: US (occurrence: None)
  Receive Date: 20220929
  Receipt Date: 20220929
  Transmission Date: 20221026
  Serious: No
  Sender: FDA-Public Use
  Company Number: None

PATIENT
  Sex: Female
  Weight: 55.6 kg

DRUGS (7)
  1. CYCLOPHOSPHAMIDE [Suspect]
     Active Substance: CYCLOPHOSPHAMIDE
  2. CYTARABINE [Concomitant]
     Active Substance: CYTARABINE
  3. DEXAMETHASONE [Concomitant]
     Active Substance: DEXAMETHASONE
  4. DOXORUBICIN HYDROCHLORIDE [Concomitant]
  5. MESNA [Concomitant]
     Active Substance: MESNA
  6. METHOTREXATE [Concomitant]
  7. VINCRISTINE SULFATE [Concomitant]

REACTIONS (3)
  - Hyperglycaemia [None]
  - Anaemia [None]
  - Platelet disorder [None]

NARRATIVE: CASE EVENT DATE: 20220831
